FAERS Safety Report 14331352 (Version 2)
Quarter: 2018Q3

REPORT INFORMATION
  Report Type: Spontaneous
  Country: ES (occurrence: ES)
  Receive Date: 20171228
  Receipt Date: 20180727
  Transmission Date: 20181010
  Serious: Yes (Other)
  Sender: FDA-Public Use
  Company Number: ES-CIPLA LTD.-2017ES28833

PATIENT

DRUGS (4)
  1. GABAPENTIN. [Suspect]
     Active Substance: GABAPENTIN
     Indication: PRODUCT USED FOR UNKNOWN INDICATION
     Dosage: 1200 MG, PER DAY
     Route: 065
     Dates: start: 20171018, end: 20171018
  2. PARACETAMOL/TRAMADOL [Interacting]
     Active Substance: ACETAMINOPHEN\TRAMADOL
     Indication: PRODUCT USED FOR UNKNOWN INDICATION
     Dosage: 2 DF, PER DAY
     Route: 065
     Dates: start: 20171018, end: 20171018
  3. RASAGILINA [Interacting]
     Active Substance: RASAGILINE
     Indication: PRODUCT USED FOR UNKNOWN INDICATION
     Dosage: 1 MG, PER DAY
     Route: 065
     Dates: start: 20171018, end: 20171018
  4. SINEMET PLUS [Interacting]
     Active Substance: CARBIDOPA\LEVODOPA
     Indication: PRODUCT USED FOR UNKNOWN INDICATION
     Dosage: 2 DF, PER DAY
     Route: 065
     Dates: start: 20171018, end: 20171018

REACTIONS (4)
  - Wrong patient received medication [Recovered/Resolved]
  - Dyskinesia [Recovered/Resolved]
  - Drug interaction [Unknown]
  - Vomiting [Recovered/Resolved]

NARRATIVE: CASE EVENT DATE: 20171018
